FAERS Safety Report 7765662-X (Version None)
Quarter: 2011Q3

REPORT INFORMATION
  Report Type: 
  Country: None (occurrence: None)
  Receive Date: 20110921
  Receipt Date: 20110916
  Transmission Date: 20111222
  Serious: Yes (Congenital Anomaly, Other)
  Sender: FDA-Public Use
  Company Number: US-PFIZER INC-2011190634

PATIENT

DRUGS (1)
  1. ZOLOFT [Suspect]
     Dosage: UNK
     Route: 064

REACTIONS (4)
  - MATERNAL EXPOSURE DURING PREGNANCY [None]
  - PULMONARY ARTERY STENOSIS [None]
  - VENTRICULAR SEPTAL DEFECT [None]
  - CONGENITAL AORTIC DILATATION [None]
